FAERS Safety Report 5713179-6 (Version None)
Quarter: 2008Q2

REPORT INFORMATION
  Report Type: 
  Country: None (occurrence: None)
  Receive Date: 20080422
  Receipt Date: 20080410
  Transmission Date: 20081010
  Serious: Yes (Other)
  Sender: FDA-Public Use
  Company Number: PHHY2008JP04563

PATIENT
  Age: 23 Year
  Sex: Male

DRUGS (10)
  1. PREDNISOLONE [Suspect]
     Indication: PEMPHIGUS
     Dosage: 60 MG/DAY
     Route: 048
     Dates: start: 20020502, end: 20020101
  2. PREDNISOLONE [Suspect]
     Dosage: 20 MG/DAY
     Route: 048
     Dates: start: 20020101, end: 20020101
  3. PREDNISOLONE [Suspect]
     Dosage: 30 MG/DAY
     Route: 048
     Dates: start: 20020101, end: 20020101
  4. PREDNISOLONE [Suspect]
     Dosage: 40 MG/DAY
     Route: 048
     Dates: start: 20020101, end: 20020101
  5. PREDNISOLONE [Suspect]
     Dosage: 25 MG/DAY
     Route: 048
  6. PREDNISOLONE [Suspect]
     Dosage: 20 MG/DAY
     Route: 048
  7. PREDNISOLONE [Suspect]
     Dosage: 30 MG/DAY
  8. METHYLPREDNISOLONE SODIUM SUCCINATE [Suspect]
     Indication: PEMPHIGUS
     Dosage: 1 G/DAY
     Dates: start: 20030902, end: 20030901
  9. BETAMETHASONE [Suspect]
     Indication: PEMPHIGUS
     Dosage: 30 MG/DAY
     Route: 048
     Dates: start: 20030101
  10. CYCLOSPORINE [Suspect]
     Indication: PEMPHIGUS
     Dosage: 250 MG/DAY
     Route: 048
     Dates: start: 20020101

REACTIONS (12)
  - BACTERIAL INFECTION [None]
  - BLOOD LACTATE DEHYDROGENASE INCREASED [None]
  - C-REACTIVE PROTEIN INCREASED [None]
  - FALL [None]
  - FEELING HOT [None]
  - FUNGUS CULTURE POSITIVE [None]
  - NODULE ON EXTREMITY [None]
  - OEDEMA PERIPHERAL [None]
  - PURULENT DISCHARGE [None]
  - RASH PUSTULAR [None]
  - SCAR [None]
  - TRICHOPHYTIC GRANULOMA [None]
